FAERS Safety Report 7783252-X (Version None)
Quarter: 2011Q3

REPORT INFORMATION
  Report Type: 
  Country: None (occurrence: None)
  Receive Date: 20110928
  Receipt Date: 20110915
  Transmission Date: 20111222
  Serious: Yes (Other)
  Sender: FDA-Public Use
  Company Number: US-JNJFOC-20110909823

PATIENT
  Age: 15 Week
  Sex: Female

DRUGS (1)
  1. INFANTS MYLICON DROPS [Suspect]
     Indication: PRODUCT USED FOR UNKNOWN INDICATION
     Dosage: ONCE EVERY OTHER DAY OR EVERY THIRD DAY
     Route: 048

REACTIONS (3)
  - REACTION TO DRUG EXCIPIENTS [None]
  - PRODUCT LABEL ISSUE [None]
  - CHOKING [None]
